FAERS Safety Report 6332626-2 (Version None)
Quarter: 2009Q3

REPORT INFORMATION
  Report Type: 
  Country: None (occurrence: None)
  Receive Date: 20090828
  Receipt Date: 20090817
  Transmission Date: 20100115
  Serious: Yes (Other)
  Sender: FDA-Public Use
  Company Number: AU-ROCHE-650478

PATIENT
  Sex: Female
  Weight: 63 kg

DRUGS (1)
  1. ROACCUTANE [Suspect]
     Indication: ACNE
     Route: 048
     Dates: start: 20080515, end: 20081115

REACTIONS (3)
  - BIPOLAR DISORDER [None]
  - DEPRESSED MOOD [None]
  - MANIA [None]
